FAERS Safety Report 14976874 (Version 1)
Quarter: 2018Q2

REPORT INFORMATION
  Report Type: Spontaneous
  Country: DE (occurrence: DE)
  Receive Date: 20180605
  Receipt Date: 20180605
  Transmission Date: 20180711
  Serious: Yes (Other)
  Sender: FDA-Public Use
  Company Number: DE-TEVA-2018-DE-902060

PATIENT
  Age: 67 Year
  Sex: Male
  Weight: 78 kg

DRUGS (3)
  1. RIVASTIGMINE. [Suspect]
     Active Substance: RIVASTIGMINE
     Dosage: NACH SCHEMA
     Route: 065
  2. LEVODOPA [Suspect]
     Active Substance: LEVODOPA
     Dosage: 600 MILLIGRAM DAILY;
     Route: 048
  3. TOLCAPON [Suspect]
     Active Substance: TOLCAPONE
     Dosage: 300 MILLIGRAM DAILY;
     Route: 048

REACTIONS (4)
  - Circulatory collapse [Unknown]
  - Hypotension [Unknown]
  - Parkinson^s disease [Unknown]
  - Hallucination [Unknown]
